FAERS Safety Report 15219252 (Version 1)
Quarter: 2018Q3

REPORT INFORMATION
  Report Type: Spontaneous
  Country: US (occurrence: US)
  Receive Date: 20180731
  Receipt Date: 20180731
  Transmission Date: 20181010
  Serious: No
  Sender: FDA-Public Use
  Company Number: US-EMMAUS MEDICAL, INC.-EMM201806-000218

PATIENT
  Age: 32 Year
  Sex: Female

DRUGS (13)
  1. ZITHROMAX [Concomitant]
     Active Substance: AZITHROMYCIN DIHYDRATE
  2. FOLIC ACID. [Concomitant]
     Active Substance: FOLIC ACID
  3. DEPO?PROVERA [Concomitant]
     Active Substance: MEDROXYPROGESTERONE ACETATE
  4. ROXICODONE [Concomitant]
     Active Substance: OXYCODONE HYDROCHLORIDE
  5. ASPIRIN. [Concomitant]
     Active Substance: ASPIRIN
  6. AUGMENTIN [Concomitant]
     Active Substance: AMOXICILLIN\CLAVULANATE POTASSIUM
  7. IBUPROFEN. [Concomitant]
     Active Substance: IBUPROFEN
  8. VENTOLIN [Concomitant]
     Active Substance: ALBUTEROL SULFATE
  9. VITAMIN D [Concomitant]
     Active Substance: CHOLECALCIFEROL
  10. CLARITIN [Concomitant]
     Active Substance: LORATADINE
  11. ENDARI [Suspect]
     Active Substance: GLUTAMINE
     Indication: SICKLE CELL DISEASE
     Route: 048
     Dates: start: 20180413
  12. ASMANEX [Concomitant]
     Active Substance: MOMETASONE FUROATE
  13. COLACE [Concomitant]
     Active Substance: DOCUSATE SODIUM

REACTIONS (1)
  - Drug ineffective [Unknown]

NARRATIVE: CASE EVENT DATE: 20180505
